FAERS Safety Report 10162265 (Version 2)
Quarter: 2014Q3

REPORT INFORMATION
  Report Type: Spontaneous
  Country: US (occurrence: US)
  Receive Date: 20140509
  Receipt Date: 20140825
  Transmission Date: 20150326
  Serious: Yes (Hospitalization, Other)
  Sender: FDA-Public Use
  Company Number: US-BAYER-2014-066689

PATIENT
  Age: 23 Year
  Sex: Female
  Weight: 119.27 kg

DRUGS (8)
  1. SYMBICORT [Concomitant]
     Active Substance: BUDESONIDE\FORMOTEROL FUMARATE DIHYDRATE
  2. PRENATAL VITAMINS [Concomitant]
     Active Substance: VITAMINS
  3. PTU [Concomitant]
     Active Substance: PROPYLTHIOURACIL
     Indication: HYPOTHYROIDISM
  4. ADVAIR HFA [Concomitant]
     Active Substance: FLUTICASONE PROPIONATE\SALMETEROL XINAFOATE
  5. YAZ [Suspect]
     Active Substance: DROSPIRENONE\ETHINYL ESTRADIOL
     Indication: CONTRACEPTION
     Dosage: UNK
     Dates: start: 200901, end: 201110
  6. YAZ [Suspect]
     Active Substance: DROSPIRENONE\ETHINYL ESTRADIOL
     Indication: CONTRACEPTION
     Dosage: UNK
     Route: 048
     Dates: start: 2007
  7. PROAIR HFA [Concomitant]
     Active Substance: ALBUTEROL SULFATE
  8. FOLIC ACID. [Concomitant]
     Active Substance: FOLIC ACID

REACTIONS (6)
  - Deep vein thrombosis [None]
  - Deep vein thrombosis [None]
  - Pulmonary embolism [None]
  - Dyspnoea [None]
  - Injury [None]
  - Thyroid disorder [None]

NARRATIVE: CASE EVENT DATE: 2007
